FAERS Safety Report 11238976 (Version 1)
Quarter: 2015Q2

REPORT INFORMATION
  Report Type: Spontaneous
  Country: CA (occurrence: None)
  Receive Date: 20150630
  Receipt Date: 20150630
  Transmission Date: 20150821
  Serious: Yes (Other)
  Sender: FDA-Public Use
  Company Number: 2015SGN00983

PATIENT
  Age: 25 Year
  Sex: Male

DRUGS (1)
  1. ADCETRIS [Suspect]
     Active Substance: BRENTUXIMAB VEDOTIN
     Indication: HODGKIN^S DISEASE
     Dosage: QCYCLE

REACTIONS (4)
  - Cerebral atrophy [None]
  - Gait disturbance [None]
  - Musculoskeletal pain [None]
  - Burning feet syndrome [None]
